FAERS Safety Report 7254305-X (Version None)
Quarter: 2011Q1

REPORT INFORMATION
  Report Type: 
  Country: None (occurrence: None)
  Receive Date: 20110129
  Receipt Date: 20100120
  Transmission Date: 20110831
  Serious: No
  Sender: FDA-Public Use
  Company Number: US-ABBOTT-10P-163-0622005-00

PATIENT
  Sex: Female
  Weight: 90.8 kg

DRUGS (10)
  1. HUMIRA [Suspect]
     Indication: COLITIS ULCERATIVE
     Route: 058
     Dates: start: 20070101, end: 20091228
  2. CYMBALTA [Concomitant]
     Indication: PRODUCT USED FOR UNKNOWN INDICATION
  3. HUMIRA [Suspect]
     Indication: ARTHRITIS
     Route: 058
     Dates: start: 20091228
  4. LIAVA [Concomitant]
     Indication: COLITIS
     Route: 048
  5. LOTREL [Concomitant]
     Indication: BLOOD PRESSURE
     Dosage: 10/20 MG
  6. VIT D GENERIC FOR DRISDOL [Concomitant]
     Indication: PRODUCT USED FOR UNKNOWN INDICATION
  7. BENTYL [Concomitant]
     Indication: PRODUCT USED FOR UNKNOWN INDICATION
  8. TEMOXIFEN [Concomitant]
     Indication: PRODUCT USED FOR UNKNOWN INDICATION
  9. PREVACID [Concomitant]
     Indication: GASTROOESOPHAGEAL REFLUX DISEASE
     Dates: start: 20000101
  10. ADENOCARD [Concomitant]
     Indication: HYPERTENSION

REACTIONS (2)
  - PAIN [None]
  - DRUG DOSE OMISSION [None]
